FAERS Safety Report 5546909-7 (Version None)
Quarter: 2007Q4

REPORT INFORMATION
  Report Type: 
  Country: None (occurrence: None)
  Receive Date: 20071211
  Receipt Date: 20071129
  Transmission Date: 20080405
  Serious: Yes (Other)
  Sender: FDA-Public Use
  Company Number: US-PFIZER INC-2007101392

PATIENT

DRUGS (1)
  1. LYRICA [Suspect]
     Indication: NEURALGIA

REACTIONS (6)
  - CONFUSIONAL STATE [None]
  - HAEMORRHAGE [None]
  - JOINT SWELLING [None]
  - MOTOR DYSFUNCTION [None]
  - SOMNOLENCE [None]
  - TREMOR [None]
